FAERS Safety Report 10149084 (Version 1)
Quarter: 2014Q2

REPORT INFORMATION
  Report Type: Report from Study
  Country: JP (occurrence: JP)
  Receive Date: 20140502
  Receipt Date: 20140502
  Transmission Date: 20141212
  Serious: Yes (Hospitalization)
  Sender: FDA-Public Use
  Company Number: JP-JNJFOC-20140416767

PATIENT
  Age: 64 Year
  Sex: Male
  Weight: 91 kg

DRUGS (5)
  1. STELARA [Suspect]
     Indication: PSORIASIS
     Dosage: TOTAL 10 DOSES
     Route: 058
     Dates: start: 20120127, end: 20120127
  2. STELARA [Suspect]
     Indication: PSORIASIS
     Dosage: CYCLE 2 TO 6
     Route: 058
     Dates: start: 20120224
  3. NEORAL [Concomitant]
     Indication: PSORIASIS
     Route: 048
     Dates: start: 1990, end: 20120210
  4. OXAROL [Concomitant]
     Indication: PSORIASIS
     Route: 061
  5. DIFLUPREDNATE [Concomitant]
     Indication: PSORIASIS
     Route: 061

REACTIONS (1)
  - Pemphigoid [Recovering/Resolving]
